FAERS Safety Report 6705003-X (Version None)
Quarter: 2010Q2

REPORT INFORMATION
  Report Type: 
  Country: None (occurrence: None)
  Receive Date: 20100430
  Receipt Date: 20100423
  Transmission Date: 20101027
  Serious: Yes (Hospitalization)
  Sender: FDA-Public Use
  Company Number: A0857205A

PATIENT
  Age: 64 Year
  Sex: Female

DRUGS (1)
  1. AVANDIA [Suspect]
     Indication: DIABETES MELLITUS
     Route: 048

REACTIONS (7)
  - ASTHENIA [None]
  - DIARRHOEA [None]
  - DISTURBANCE IN ATTENTION [None]
  - DYSPNOEA [None]
  - FATIGUE [None]
  - FREQUENT BOWEL MOVEMENTS [None]
  - PAIN IN EXTREMITY [None]
